FAERS Safety Report 25929695 (Version 1)
Quarter: 2025Q4

REPORT INFORMATION
  Report Type: Spontaneous
  Country: TR (occurrence: TR)
  Receive Date: 20251016
  Receipt Date: 20251016
  Transmission Date: 20260118
  Serious: Yes (Other)
  Sender: ROCHE
  Company Number: TR-ROCHE-10000405688

PATIENT
  Age: 70 Year
  Sex: Female

DRUGS (1)
  1. ATEZOLIZUMAB [Suspect]
     Active Substance: ATEZOLIZUMAB
     Indication: Non-small cell lung cancer metastatic
     Route: 065

REACTIONS (8)
  - Pulmonary mass [Unknown]
  - Hepatic mass [Unknown]
  - Pain [Unknown]
  - Neoplasm [Unknown]
  - Lichen planus [Unknown]
  - Rash [Unknown]
  - Bronchial wall thickening [Unknown]
  - Psoriasis [Unknown]
